FAERS Safety Report 6400496-X (Version None)
Quarter: 2009Q4

REPORT INFORMATION
  Report Type: 
  Country: None (occurrence: None)
  Receive Date: 20091013
  Receipt Date: 20091013
  Transmission Date: 20100525
  Serious: Yes (Other)
  Sender: FDA-Public Use
  Company Number: None

PATIENT
  Age: 58 Year
  Sex: Female
  Weight: 92.5338 kg

DRUGS (1)
  1. EFFEXOR XR [Suspect]
     Indication: MAJOR DEPRESSION
     Dosage: 37.5MG 1 A DAY PO
     Route: 048
     Dates: start: 20091001, end: 20091004

REACTIONS (5)
  - ASTHENIA [None]
  - BALANCE DISORDER [None]
  - DYSGRAPHIA [None]
  - DYSPHAGIA [None]
  - DYSPHONIA [None]
